FAERS Safety Report 24335988 (Version 1)
Quarter: 2024Q3

REPORT INFORMATION
  Report Type: Spontaneous
  Country: US (occurrence: US)
  Receive Date: 20240919
  Receipt Date: 20240919
  Transmission Date: 20241017
  Serious: Yes (Hospitalization)
  Sender: SANDOZ
  Company Number: US-SANDOZ-SDZ2024US080284

PATIENT
  Age: 58 Year
  Sex: Female

DRUGS (6)
  1. CAYSTON [Suspect]
     Active Substance: AZTREONAM
     Indication: Respiratory disorder
     Dosage: 75 MG, TID
     Route: 055
     Dates: start: 202208
  2. CAYSTON [Suspect]
     Active Substance: AZTREONAM
     Indication: Bronchiectasis
     Dosage: 75 MG, TID
     Route: 055
     Dates: start: 202309
  3. CAYSTON [Suspect]
     Active Substance: AZTREONAM
     Dosage: 75 MG, TID
     Route: 055
     Dates: start: 202309
  4. CAYSTON [Suspect]
     Active Substance: AZTREONAM
     Dosage: 75 MG, TID(R 28 DAYS ON AND 28 DAYS OFF)
     Route: 055
     Dates: start: 202208
  5. TOBRAMYCIN [Suspect]
     Active Substance: TOBRAMYCIN\TOBRAMYCIN SULFATE
     Indication: Product used for unknown indication
     Dosage: UNK, BID
     Route: 065
     Dates: start: 202208
  6. TOBRAMYCIN [Suspect]
     Active Substance: TOBRAMYCIN\TOBRAMYCIN SULFATE
     Dosage: UNK, BID(28 DAYS ON, THEN 28 DAYS OFF,)
     Route: 065
     Dates: start: 202208

REACTIONS (2)
  - Dyspnoea [Recovering/Resolving]
  - Off label use [Unknown]

NARRATIVE: CASE EVENT DATE: 20240701
